FAERS Safety Report 6841171-7 (Version None)
Quarter: 2010Q3

REPORT INFORMATION
  Report Type: 
  Country: None (occurrence: None)
  Receive Date: 20100714
  Receipt Date: 20070627
  Transmission Date: 20110219
  Serious: No
  Sender: FDA-Public Use
  Company Number: US-PFIZER INC-2007054084

PATIENT
  Sex: Female

DRUGS (6)
  1. CHANTIX [Suspect]
     Indication: SMOKING CESSATION THERAPY
     Route: 048
     Dates: start: 20070601
  2. SYNTHROID [Concomitant]
     Route: 048
  3. ANTIHYPERTENSIVES [Concomitant]
     Route: 048
  4. VITAMIN E [Concomitant]
     Route: 048
  5. SELENIUM [Concomitant]
     Route: 048
  6. OTHER RESPIRATORY SYSTEM PRODUCTS [Concomitant]
     Route: 055
     Dates: end: 20070601

REACTIONS (3)
  - DRY MOUTH [None]
  - NAUSEA [None]
  - WEIGHT DECREASED [None]
